FAERS Safety Report 15029490 (Version 1)
Quarter: 2018Q2

REPORT INFORMATION
  Report Type: Report from Study
  Country: None (occurrence: CA)
  Receive Date: 20180619
  Receipt Date: 20180619
  Transmission Date: 20180711
  Serious: Yes (Hospitalization, Disabling, Other)
  Sender: FDA-Public Use
  Company Number: CA-ABBVIE-18K-028-2368414-00

PATIENT
  Sex: Female
  Weight: 53.12 kg

DRUGS (4)
  1. TAMOXIFEN [Concomitant]
     Active Substance: TAMOXIFEN
     Indication: NEOPLASM MALIGNANT
     Route: 048
  2. DUODOPA [Suspect]
     Active Substance: CARBIDOPA\LEVODOPA
     Indication: PARKINSON^S DISEASE
     Dosage: MORNING DOSE: 10.5ML??CONTINUOUS DOSE: 4ML/H??EXTRA DOSE: 2ML.
     Route: 050
     Dates: start: 20161214
  3. LEVOTHYROXINE. [Concomitant]
     Active Substance: LEVOTHYROXINE
     Indication: HYPOTHYROIDISM
     Route: 048
  4. SEROQUEL [Concomitant]
     Active Substance: QUETIAPINE FUMARATE
     Indication: SLEEP DISORDER THERAPY
     Route: 048

REACTIONS (7)
  - Adverse reaction [Unknown]
  - Hypothyroidism [Not Recovered/Not Resolved]
  - Expired product administered [Unknown]
  - Mobility decreased [Unknown]
  - Decubitus ulcer [Not Recovered/Not Resolved]
  - Neoplasm malignant [Not Recovered/Not Resolved]
  - Leg amputation [Unknown]

NARRATIVE: CASE EVENT DATE: 2018
